FAERS Safety Report 24222260 (Version 2)
Quarter: 2024Q3

REPORT INFORMATION
  Report Type: Spontaneous
  Country: IT (occurrence: IT)
  Receive Date: 20240819
  Receipt Date: 20240824
  Transmission Date: 20241016
  Serious: Yes (Life-Threatening, Other)
  Sender: AMGEN
  Company Number: IT-AMGEN-ITASP2024161430

PATIENT

DRUGS (5)
  1. PEGFILGRASTIM [Suspect]
     Active Substance: PEGFILGRASTIM
     Indication: Plasma cell myeloma refractory
     Dosage: 6 MILLIGRAM, PEGFILGRASTIM DAY +8) EVERY 28 DAYS, UNTIL PROGRESSION
     Route: 058
  2. PEGFILGRASTIM [Suspect]
     Active Substance: PEGFILGRASTIM
     Indication: Prophylaxis
  3. FILGRASTIM [Suspect]
     Active Substance: FILGRASTIM
     Indication: Plasma cell myeloma refractory
     Dosage: 5 MICROGRAM/KILOGRAM, QD (FOR 3 DAYS)
     Route: 065
  4. POMALIDOMIDE [Concomitant]
     Active Substance: POMALIDOMIDE
     Indication: Plasma cell myeloma refractory
     Dosage: 4 MILLIGRAM FOR 21 DAYS
  5. DEXAMETHASONE [Concomitant]
     Active Substance: DEXAMETHASONE
     Indication: Plasma cell myeloma refractory
     Dosage: 40 MILLIGRAM (DAYS 1,8,15,22,)

REACTIONS (6)
  - Neutropenic infection [Unknown]
  - Neutropenia [Unknown]
  - Anaemia [Unknown]
  - Thrombocytopenia [Unknown]
  - Pyrexia [Unknown]
  - Bone pain [Unknown]
